FAERS Safety Report 16645135 (Version 2)
Quarter: 2019Q3

REPORT INFORMATION
  Report Type: Spontaneous
  Country: DE (occurrence: DE)
  Receive Date: 20190729
  Receipt Date: 20190814
  Transmission Date: 20191004
  Serious: Yes (Other)
  Sender: FDA-Public Use
  Company Number: DE-BAUSCH-BL-2019-021671

PATIENT
  Age: 72 Year
  Sex: Male

DRUGS (8)
  1. FLUOROURACIL. [Suspect]
     Active Substance: FLUOROURACIL
     Indication: COLON CANCER
     Dosage: ONE MONTH AFTER SURGERY
     Route: 065
     Dates: start: 201202
  2. OXALIPLATIN. [Suspect]
     Active Substance: OXALIPLATIN
     Indication: COLON CANCER
     Dosage: ONE MONTH AFTER SURGERY, CYCLICAL
     Route: 065
     Dates: start: 201202
  3. BEVACIZUMAB. [Suspect]
     Active Substance: BEVACIZUMAB
     Indication: COLON CANCER
     Dosage: ONE MONTH AFTER SURGERY
     Route: 065
     Dates: start: 201202, end: 201306
  4. FOLINIC ACID [Suspect]
     Active Substance: LEUCOVORIN
     Indication: COLON CANCER
     Dosage: ONE MONTH AFTER SURGERY
     Route: 065
     Dates: start: 201202
  5. BEVACIZUMAB. [Suspect]
     Active Substance: BEVACIZUMAB
     Indication: METASTASES TO LIVER
  6. OXALIPLATIN. [Suspect]
     Active Substance: OXALIPLATIN
     Indication: METASTASES TO LIVER
     Route: 065
     Dates: end: 2012
  7. FOLINIC ACID [Suspect]
     Active Substance: LEUCOVORIN
     Indication: METASTASES TO LIVER
  8. FLUOROURACIL. [Suspect]
     Active Substance: FLUOROURACIL
     Indication: METASTASES TO LIVER

REACTIONS (5)
  - Cholecystitis chronic [Unknown]
  - Polyneuropathy [Unknown]
  - Proteinuria [Unknown]
  - Neoplasm recurrence [Unknown]
  - Pain [Unknown]

NARRATIVE: CASE EVENT DATE: 2012
